FAERS Safety Report 4900289-6 (Version None)
Quarter: 2006Q1

REPORT INFORMATION
  Report Type: 
  Country: None (occurrence: None)
  Receive Date: 20060203
  Receipt Date: 20060112
  Transmission Date: 20060701
  Serious: Yes (Disabling, Other)
  Sender: FDA-Public Use
  Company Number: 2006GB00065

PATIENT
  Age: 27447 Day
  Sex: Female

DRUGS (10)
  1. CRESTOR [Suspect]
     Indication: BLOOD CHOLESTEROL INCREASED
     Route: 048
     Dates: start: 20051101
  2. CRESTOR [Suspect]
     Route: 048
     Dates: start: 20051121, end: 20060106
  3. BETNESOL-N EYE OINTMENT [Concomitant]
     Route: 061
     Dates: start: 20040608
  4. CYCLOPENTOLATE HYDROCHLORIDE EYE DROPS [Concomitant]
     Route: 031
     Dates: start: 20040608
  5. ASPIRIN DISPERSIBLE TABLETS [Concomitant]
     Route: 048
     Dates: start: 20051102
  6. OMEPRAZOLE [Concomitant]
     Route: 048
     Dates: start: 20051102
  7. ISOSORBIDE MONONITRATE M/R TABLETS [Concomitant]
     Dosage: HALF A TABLET DAILY
     Route: 048
     Dates: start: 20041201
  8. FUROSEMIDE [Concomitant]
     Route: 048
     Dates: start: 20041115
  9. ALENDRONIC ACID TABLETS [Concomitant]
     Dosage: AS DIRECTED 1*4 TABLET(S)
     Route: 048
     Dates: start: 20021008
  10. PREDNISOLONE [Concomitant]
     Route: 048
     Dates: start: 19941019

REACTIONS (5)
  - ANTINUCLEAR ANTIBODY POSITIVE [None]
  - C-REACTIVE PROTEIN INCREASED [None]
  - MALAISE [None]
  - RASH [None]
  - RED BLOOD CELL SEDIMENTATION RATE INCREASED [None]
